FAERS Safety Report 7677989-0 (Version None)
Quarter: 2011Q3

REPORT INFORMATION
  Report Type: 
  Country: None (occurrence: None)
  Receive Date: 20110811
  Receipt Date: 20110805
  Transmission Date: 20111222
  Serious: Yes (Hospitalization)
  Sender: FDA-Public Use
  Company Number: US-GLAXOSMITHKLINE-A0939915A

PATIENT
  Age: 61 Year
  Sex: Male

DRUGS (6)
  1. COREG [Suspect]
     Indication: MYOCARDIAL INFARCTION
     Dosage: 6.25MG TWICE PER DAY
     Route: 048
     Dates: start: 20100928, end: 20110602
  2. PRILOSEC [Concomitant]
     Dates: start: 20101201, end: 20110201
  3. ZESTRIL [Concomitant]
  4. ASPIRIN [Concomitant]
  5. PRASUGREL [Concomitant]
  6. NEXIUM [Concomitant]
     Dates: end: 20110601

REACTIONS (4)
  - HYPERCHLORHYDRIA [None]
  - GASTROOESOPHAGEAL REFLUX DISEASE [None]
  - MALAISE [None]
  - GASTRIC DILATATION [None]
